FAERS Safety Report 4720967-1 (Version None)
Quarter: 2005Q3

REPORT INFORMATION
  Report Type: 
  Country: None (occurrence: None)
  Receive Date: 20050720
  Receipt Date: 20050708
  Transmission Date: 20060218
  Serious: Yes (Other)
  Sender: FDA-Public Use
  Company Number: 2005100120

PATIENT
  Sex: Male

DRUGS (2)
  1. ALDACTONE [Suspect]
     Indication: HYPERTENSION
     Dosage: (25 MG),ORAL
     Route: 048
  2. ATACAND [Suspect]
     Indication: HYPERTENSION
     Dosage: (16 MG),ORAL
     Route: 048

REACTIONS (5)
  - ASTHMA [None]
  - CONTRAINDICATION TO MEDICAL TREATMENT [None]
  - DERMATOSIS [None]
  - INFECTION [None]
  - TOTAL LUNG CAPACITY DECREASED [None]
